FAERS Safety Report 10227989 (Version 1)
Quarter: 2014Q2

REPORT INFORMATION
  Report Type: Spontaneous
  Country: US (occurrence: None)
  Receive Date: 20140609
  Receipt Date: 20140609
  Transmission Date: 20141212
  Serious: Yes (Life-Threatening, Hospitalization, Other)
  Sender: FDA-Public Use
  Company Number: None

PATIENT
  Age: 69 Year
  Sex: Female
  Weight: 59.88 kg

DRUGS (1)
  1. FONDAPARINUX [Suspect]
     Indication: EPIDURAL INJECTION
     Route: 058
     Dates: start: 20130124, end: 20130311

REACTIONS (6)
  - Intra-abdominal haematoma [None]
  - Deep vein thrombosis [None]
  - Haemorrhage [None]
  - Renal failure acute [None]
  - Pulmonary embolism [None]
  - Muscle rupture [None]
